FAERS Safety Report 4650755-6 (Version None)
Quarter: 2005Q2

REPORT INFORMATION
  Report Type: 
  Country: None (occurrence: None)
  Receive Date: 20050429
  Receipt Date: 20050422
  Transmission Date: 20051028
  Serious: Yes (Hospitalization)
  Sender: FDA-Public Use
  Company Number: 213980

PATIENT
  Age: 84 Year
  Sex: Male
  Weight: 59 kg

DRUGS (7)
  1. RAPTIVA [Suspect]
     Indication: PSORIASIS
     Dosage: 0.6 M, 1/WEEK, SUBCUTANEOUS
     Route: 058
     Dates: start: 20041123, end: 20050315
  2. ACCOLATE [Concomitant]
  3. LISINOPRIL [Concomitant]
  4. PLAVIX [Concomitant]
  5. ASPIRIN [Concomitant]
  6. COREG [Concomitant]
  7. POTASSIUM (POTASSIUM NOS) [Concomitant]

REACTIONS (4)
  - BLOOD CREATININE INCREASED [None]
  - BLOOD UREA INCREASED [None]
  - PYREXIA [None]
  - WHITE BLOOD CELL COUNT INCREASED [None]
